FAERS Safety Report 6445751-2 (Version None)
Quarter: 2009Q4

REPORT INFORMATION
  Report Type: 
  Country: None (occurrence: None)
  Receive Date: 20091119
  Receipt Date: 20091108
  Transmission Date: 20100525
  Serious: Yes (Life-Threatening)
  Sender: FDA-Public Use
  Company Number: IT-RANBAXY-2009RR-29182

PATIENT
  Sex: Female

DRUGS (1)
  1. RAMIPRIL [Suspect]

REACTIONS (2)
  - HYPERKALAEMIA [None]
  - VENTRICULAR EXTRASYSTOLES [None]
